FAERS Safety Report 16505478 (Version 2)
Quarter: 2019Q3

REPORT INFORMATION
  Report Type: Spontaneous
  Country: US (occurrence: US)
  Receive Date: 20190701
  Receipt Date: 20190722
  Transmission Date: 20191004
  Serious: No
  Sender: FDA-Public Use
  Company Number: US-SA-2019SA171315

PATIENT
  Age: 36 Year
  Sex: Male

DRUGS (1)
  1. APIDRA SOLOSTAR [Suspect]
     Active Substance: INSULIN GLULISINE
     Indication: TYPE 1 DIABETES MELLITUS
     Route: 065

REACTIONS (3)
  - Hyperglycaemia [Unknown]
  - Incorrect dose administered by device [Unknown]
  - Device issue [Unknown]
